FAERS Safety Report 25516103 (Version 2)
Quarter: 2025Q3

REPORT INFORMATION
  Report Type: Spontaneous
  Country: US (occurrence: US)
  Receive Date: 20250704
  Receipt Date: 20250920
  Transmission Date: 20251021
  Serious: No
  Sender: LUPIN
  Company Number: US-LUPIN PHARMACEUTICALS INC.-2025-05531

PATIENT
  Age: 39 Year
  Weight: 83.9 kg

DRUGS (3)
  1. ALBUTEROL SULFATE [Suspect]
     Active Substance: ALBUTEROL SULFATE
     Indication: Asthma
     Dosage: 2 TIMES AS NEEDED, BID
  2. ALBUTEROL SULFATE [Suspect]
     Active Substance: ALBUTEROL SULFATE
     Dosage: 2 TIMES AS NEEDED, BID
  3. ALBUTEROL SULFATE [Suspect]
     Active Substance: ALBUTEROL SULFATE
     Dosage: 2 TIMES AS NEEDED, BID

REACTIONS (7)
  - Dyspnoea [Unknown]
  - Agitation [Unknown]
  - Drug dose omission by device [Unknown]
  - Product preparation error [Unknown]
  - Device deposit issue [Unknown]
  - Device delivery system issue [Unknown]
  - Device malfunction [Unknown]
